FAERS Safety Report 9272102 (Version 1)
Quarter: 2013Q2

REPORT INFORMATION
  Report Type: Spontaneous
  Country: ES (occurrence: ES)
  Receive Date: 20130506
  Receipt Date: 20130506
  Transmission Date: 20140414
  Serious: Yes (Other)
  Sender: FDA-Public Use
  Company Number: ES-UCBSA-085011

PATIENT
  Age: 61 Year
  Sex: Female

DRUGS (6)
  1. VIMPAT [Suspect]
     Indication: NEURALGIA
     Dosage: STRENGTH: 100 MG
     Route: 048
     Dates: start: 20130105, end: 20130107
  2. ACTIQ [Concomitant]
     Indication: CARPAL TUNNEL SYNDROME
     Dosage: STRENGTH: 200 MCG
     Route: 048
     Dates: start: 2010
  3. CYMBALTA [Concomitant]
     Indication: NEURALGIA
     Dosage: DAILY DOSE: 60 MG
     Route: 048
     Dates: start: 2010
  4. DUROGESIC MATRIX [Concomitant]
     Indication: NEURALGIA
     Dosage: STRENGTH: 100 MCG TRANSDERMAL PATCHES
     Route: 062
     Dates: start: 2010
  5. NEURONTIN [Concomitant]
     Indication: NEURALGIA
     Dosage: STRENGTH: 300 MG
     Route: 048
     Dates: start: 2010
  6. VERSATIS [Concomitant]
     Indication: NEURALGIA
     Dosage: 5% MEDICAMENTOUS ADHESIVE STRIP
     Route: 062
     Dates: start: 2012

REACTIONS (4)
  - Coordination abnormal [Recovered/Resolved]
  - Dysarthria [Recovered/Resolved]
  - Loss of consciousness [Recovered/Resolved]
  - Fall [Recovered/Resolved]
